FAERS Safety Report 18464099 (Version 1)
Quarter: 2020Q4

REPORT INFORMATION
  Report Type: Report from Study
  Country: FR (occurrence: FR)
  Receive Date: 20201104
  Receipt Date: 20201104
  Transmission Date: 20210114
  Serious: Yes (Death, Hospitalization, Other)
  Sender: FDA-Public Use
  Company Number: FR-JAZZ-2019-FR-016249

PATIENT

DRUGS (5)
  1. TACROLIMUS. [Concomitant]
     Active Substance: TACROLIMUS
     Indication: PROPHYLAXIS
  2. PEGASYS [Concomitant]
     Active Substance: PEGINTERFERON ALFA-2A
     Indication: CHIMERISM
     Dosage: 90 MG/WEEK
     Route: 058
     Dates: start: 20150911, end: 20151211
  3. OFLOXACIN. [Concomitant]
     Active Substance: OFLOXACIN
     Indication: PYREXIA
     Dosage: UNKNOWN DOSE
     Route: 048
     Dates: start: 20160531, end: 20160602
  4. DEFITELIO [Suspect]
     Active Substance: DEFIBROTIDE SODIUM
     Indication: VENOOCCLUSIVE LIVER DISEASE
     Dosage: 25 MG/KG/DAY
     Route: 042
     Dates: start: 20150609, end: 20150630
  5. CICLOSPORIN [Concomitant]
     Active Substance: CYCLOSPORINE
     Indication: PROPHYLAXIS

REACTIONS (6)
  - Sepsis [Recovered/Resolved]
  - Acute respiratory distress syndrome [Recovered/Resolved with Sequelae]
  - Graft versus host disease in liver [Fatal]
  - Graft versus host disease in gastrointestinal tract [Fatal]
  - Pneumonia klebsiella [Recovered/Resolved with Sequelae]
  - Leukaemia recurrent [Fatal]

NARRATIVE: CASE EVENT DATE: 20150915
